FAERS Safety Report 23246893 (Version 1)
Quarter: 2023Q4

REPORT INFORMATION
  Report Type: Spontaneous
  Country: FR (occurrence: FR)
  Receive Date: 20231130
  Receipt Date: 20231130
  Transmission Date: 20240109
  Serious: Yes (Hospitalization)
  Sender: FDA-Public Use
  Company Number: None

PATIENT
  Age: 38 Year
  Sex: Male
  Weight: 65 kg

DRUGS (3)
  1. VENLAFAXINE [Suspect]
     Active Substance: VENLAFAXINE HYDROCHLORIDE
     Indication: Product used for unknown indication
     Dosage: 2250 MILLIGRAM, TOTAL (75 MG X 30 TABS)
     Route: 048
     Dates: start: 20231011, end: 20231011
  2. CYAMEMAZINE [Suspect]
     Active Substance: CYAMEMAZINE
     Indication: Product used for unknown indication
     Dosage: 1050 MILLIGRAM, TOTAL (25 MG X 42 TABS)
     Route: 048
     Dates: start: 20231011, end: 20231011
  3. OXAZEPAM [Suspect]
     Active Substance: OXAZEPAM
     Indication: Product used for unknown indication
     Dosage: 1000 MILLIGRAM, TOTAL (50 MG X 20 TABS)
     Route: 048
     Dates: start: 20231011, end: 20231011

REACTIONS (2)
  - Haemodynamic instability [Recovered/Resolved]
  - Poisoning deliberate [Recovered/Resolved]

NARRATIVE: CASE EVENT DATE: 20231011
